FAERS Safety Report 16168592 (Version 1)
Quarter: 2019Q2

REPORT INFORMATION
  Report Type: Spontaneous
  Country: US (occurrence: US)
  Receive Date: 20190408
  Receipt Date: 20190408
  Transmission Date: 20190711
  Serious: Yes (Death, Hospitalization, Other)
  Sender: FDA-Public Use
  Company Number: US-GLAXOSMITHKLINE-US2019GSK060415

PATIENT
  Age: 72 Year
  Sex: Male

DRUGS (3)
  1. LEVOFLOXACIN. [Concomitant]
     Active Substance: LEVOFLOXACIN
     Indication: PRODUCT USED FOR UNKNOWN INDICATION
     Dosage: UNK
  2. TERBINAFINE. [Suspect]
     Active Substance: TERBINAFINE
     Indication: ONYCHOMYCOSIS
     Dosage: UNK
  3. PREDNISONE. [Concomitant]
     Active Substance: PREDNISONE
     Indication: PRODUCT USED FOR UNKNOWN INDICATION
     Dosage: UNK

REACTIONS (18)
  - Decreased appetite [Unknown]
  - Ascites [Unknown]
  - Hepatosplenomegaly [Unknown]
  - Shock [Unknown]
  - Chromaturia [Unknown]
  - Weight decreased [Unknown]
  - Malaise [Unknown]
  - Mental impairment [Unknown]
  - Condition aggravated [Unknown]
  - Pleural effusion [Unknown]
  - Ocular icterus [Unknown]
  - Abdominal tenderness [Unknown]
  - Multiple organ dysfunction syndrome [Unknown]
  - Acute hepatic failure [Fatal]
  - Dyspnoea [Unknown]
  - Cough [Unknown]
  - Serum ferritin increased [Unknown]
  - Mental status changes [Unknown]
